FAERS Safety Report 16011520 (Version 2)
Quarter: 2019Q2

REPORT INFORMATION
  Report Type: Spontaneous
  Country: US (occurrence: US)
  Receive Date: 20190227
  Receipt Date: 20190502
  Transmission Date: 20190711
  Serious: No
  Sender: FDA-Public Use
  Company Number: US-PFIZER INC-2019073084

PATIENT
  Age: 66 Year
  Sex: Female

DRUGS (3)
  1. BELSOMRA [Concomitant]
     Active Substance: SUVOREXANT
     Dosage: 20 MG, 1X/DAY (ONCE AT NIGHT)
     Route: 048
  2. LYRICA [Suspect]
     Active Substance: PREGABALIN
     Dosage: 100 MG, 1X/DAY (ONCE DAILY AT NIGHT)
     Dates: start: 2006
  3. LYRICA [Suspect]
     Active Substance: PREGABALIN
     Indication: FIBROMYALGIA
     Dosage: UNK

REACTIONS (5)
  - Intentional product use issue [Unknown]
  - Expired product administered [Unknown]
  - Somnolence [Unknown]
  - Pain [Unknown]
  - Fibromyalgia [Unknown]

NARRATIVE: CASE EVENT DATE: 201902
